FAERS Safety Report 25623871 (Version 2)
Quarter: 2025Q4

REPORT INFORMATION
  Report Type: Spontaneous
  Country: US (occurrence: US)
  Receive Date: 20250730
  Receipt Date: 20251031
  Transmission Date: 20260117
  Serious: No
  Sender: Tarsus Pharmaceuticals
  Company Number: US-TARSUS PHARMACEUTICALS-TSP-US-2025-000431

PATIENT

DRUGS (2)
  1. XDEMVY [Suspect]
     Active Substance: LOTILANER
     Indication: Product used for unknown indication
     Dosage: 1 DROP, BID FOR 6 WEEKS
     Route: 047
     Dates: start: 20241023
  2. XDEMVY [Suspect]
     Active Substance: LOTILANER
     Dosage: 1 GTT DROPS, BID (1 DROP INTO BOTH EYES EVERY 12 HOURS FOR 6 WEEKS)
     Route: 047
     Dates: start: 20250418

REACTIONS (6)
  - Accidental exposure to product [Unknown]
  - Exposure via skin contact [Unknown]
  - Product use issue [Unknown]
  - Wrong technique in product usage process [Unknown]
  - Product use complaint [Unknown]
  - Product dose omission issue [Unknown]
